FAERS Safety Report 4362155-7 (Version None)
Quarter: 2004Q2

REPORT INFORMATION
  Report Type: 
  Country: None (occurrence: None)
  Receive Date: 20040517
  Receipt Date: 20040510
  Transmission Date: 20050107
  Serious: Yes (Other)
  Sender: FDA-Public Use
  Company Number: 2004209357US

PATIENT
  Age: 63 Year
  Sex: Male
  Weight: 74.8 kg

DRUGS (3)
  1. DETROL LA [Suspect]
     Indication: POLLAKIURIA
     Dosage: ORAL
     Route: 048
     Dates: start: 20040302, end: 20040310
  2. LAMICTAL [Concomitant]
  3. TIAZAC [Concomitant]

REACTIONS (3)
  - CLAVICLE FRACTURE [None]
  - CONVULSION [None]
  - FALL [None]
